FAERS Safety Report 8502097-6 (Version None)
Quarter: 2012Q2

REPORT INFORMATION
  Report Type: 
  Country: None (occurrence: None)
  Receive Date: 20120405
  Receipt Date: 20101018
  Transmission Date: 20120825
  Serious: Yes (Life-Threatening, Other)
  Sender: FDA-Public Use
  Company Number: PHHY2010US65978

PATIENT
  Age: 57 Year
  Sex: Female
  Weight: 70.7 kg

DRUGS (3)
  1. RECLAST [Suspect]
     Indication: OSTEOPOROSIS
     Dosage: 5MG, INTRAVENOUS
     Route: 042
     Dates: start: 20100917
  2. LIPITOR [Concomitant]
  3. NEXIUM [Concomitant]

REACTIONS (9)
  - APHAGIA [None]
  - ASTHENIA [None]
  - MALAISE [None]
  - DIARRHOEA [None]
  - VOMITING [None]
  - HEADACHE [None]
  - DIZZINESS [None]
  - CHILLS [None]
  - PYREXIA [None]
